FAERS Safety Report 10041197 (Version 1)
Quarter: 2014Q1

REPORT INFORMATION
  Report Type: Spontaneous
  Country: CL (occurrence: CL)
  Receive Date: 20140327
  Receipt Date: 20140327
  Transmission Date: 20141002
  Serious: Yes (Death, Other)
  Sender: FDA-Public Use
  Company Number: CL-PFIZER INC-2014084734

PATIENT
  Age: 83 Year
  Sex: Female

DRUGS (2)
  1. XALATAN [Suspect]
     Indication: GLAUCOMA
     Dosage: 5 DROPS IN EACH EYE
     Route: 047
     Dates: start: 2001, end: 201303
  2. PARACETAMOL [Concomitant]
     Dosage: UNK

REACTIONS (2)
  - Cerebrovascular accident [Fatal]
  - Overdose [Not Recovered/Not Resolved]
